FAERS Safety Report 18356926 (Version 1)
Quarter: 2020Q4

REPORT INFORMATION
  Report Type: Spontaneous
  Country: PT (occurrence: PT)
  Receive Date: 20201007
  Receipt Date: 20201007
  Transmission Date: 20210114
  Serious: Yes (Hospitalization, Other)
  Sender: FDA-Public Use
  Company Number: PT-MYLANLABS-2020M1084438

PATIENT
  Age: 37 Year
  Sex: Female

DRUGS (14)
  1. VITAMIN B COMPLEX [Suspect]
     Active Substance: CYANOCOBALAMIN\DEXPANTHENOL\NIACINAMIDE\PYRIDOXINE HYDROCHLORIDE\RIBOFLAVIN 5^-PHOSPHATE SODIUM\THIAMINE HYDROCHLORIDE\VITAMIN B COMPLEX
     Indication: PRODUCT USED FOR UNKNOWN INDICATION
     Dosage: UNK
  2. BETAMETHASONE. [Suspect]
     Active Substance: BETAMETHASONE
     Indication: MATERNAL THERAPY TO ENHANCE FOETAL LUNG MATURITY
     Dosage: UNK
     Dates: start: 2013
  3. NIFEDIPINE. [Suspect]
     Active Substance: NIFEDIPINE
     Indication: TOCOLYSIS
     Dosage: UNK
     Dates: start: 2013
  4. SERTRALINE [Suspect]
     Active Substance: SERTRALINE HYDROCHLORIDE
     Indication: PRODUCT USED FOR UNKNOWN INDICATION
     Dosage: 50 MILLIGRAM, QD
  5. AMITRIPTYLINE [Suspect]
     Active Substance: AMITRIPTYLINE
     Indication: PRODUCT USED FOR UNKNOWN INDICATION
     Dosage: 10 MILLIGRAM, QD
     Dates: end: 201304
  6. METHYLDOPA. [Suspect]
     Active Substance: METHYLDOPA
     Indication: PROPHYLAXIS
     Dosage: 750 MILLIGRAM, QD, AT 27 WEEKS
     Dates: start: 2013
  7. ALLOPURINOL. [Suspect]
     Active Substance: ALLOPURINOL
     Indication: PRODUCT USED FOR UNKNOWN INDICATION
     Dosage: 100 MILLIGRAM, QD
     Dates: end: 201304
  8. FERROUS SULFATE. [Suspect]
     Active Substance: FERROUS SULFATE
     Indication: PRODUCT USED FOR UNKNOWN INDICATION
     Dosage: UNK
  9. ACETYLSALICYLIC ACID [Suspect]
     Active Substance: ASPIRIN
     Indication: PRODUCT USED FOR UNKNOWN INDICATION
     Dosage: 100 MILLIGRAM, QD
     Dates: start: 201304
  10. DARBEPOETIN ALFA [Suspect]
     Active Substance: DARBEPOETIN ALFA
     Indication: PRODUCT USED FOR UNKNOWN INDICATION
     Dosage: UNK
  11. DARBEPOETIN ALFA [Suspect]
     Active Substance: DARBEPOETIN ALFA
     Dosage: 10 MICROGRAM, QW, PROGRESSIVE INCREASE IN THE DOSE
  12. FOLIC ACID. [Suspect]
     Active Substance: FOLIC ACID
     Indication: PRODUCT USED FOR UNKNOWN INDICATION
     Dosage: UNK
  13. METHYLDOPA. [Suspect]
     Active Substance: METHYLDOPA
     Dosage: 1500 MILLIGRAM, QD, AT 35 WEEKS
     Dates: start: 2013
  14. ROSUVASTATIN. [Suspect]
     Active Substance: ROSUVASTATIN
     Indication: PRODUCT USED FOR UNKNOWN INDICATION
     Dosage: 20 MILLIGRAM, QD
     Dates: end: 201304

REACTIONS (6)
  - Premature delivery [Unknown]
  - Haemoperitoneum [Unknown]
  - Hypertension [Unknown]
  - Maternal exposure during pregnancy [Recovered/Resolved]
  - Urinary tract infection [Unknown]
  - Abdominal distension [Unknown]

NARRATIVE: CASE EVENT DATE: 2013
